FAERS Safety Report 8231961-0 (Version None)
Quarter: 2012Q1

REPORT INFORMATION
  Report Type: 
  Country: None (occurrence: None)
  Receive Date: 20120323
  Receipt Date: 20120316
  Transmission Date: 20120608
  Serious: Yes (Other)
  Sender: FDA-Public Use
  Company Number: RS-JNJFOC-20100805135

PATIENT
  Sex: Female

DRUGS (4)
  1. RISPERIDONE [Suspect]
     Route: 048
     Dates: start: 20100504
  2. RISPERIDONE [Suspect]
     Indication: PSYCHOTIC DISORDER
     Route: 048
     Dates: end: 20100603
  3. RISPERIDONE [Suspect]
     Route: 048
  4. CLONAZEPAM [Concomitant]
     Route: 065

REACTIONS (2)
  - BREAST PAIN [None]
  - PITUITARY TUMOUR BENIGN [None]
